FAERS Safety Report 8446011-0 (Version None)
Quarter: 2012Q2

REPORT INFORMATION
  Report Type: 
  Country: None (occurrence: None)
  Receive Date: 20120323
  Receipt Date: 20110830
  Transmission Date: 20120825
  Serious: Yes (Hospitalization)
  Sender: FDA-Public Use
  Company Number: 163-21880-11090632

PATIENT
  Age: 74 Year
  Sex: Female
  Weight: 49.8957 kg

DRUGS (15)
  1. DETROL [Concomitant]
  2. SERTRALINE HYDROCHLORIDE [Concomitant]
  3. REVLIMID [Suspect]
     Indication: MULTIPLE MYELOMA
     Dosage: 25 MG, 1 IN 1 D, PO : 25 MG, QD X14 DAYS, PO
     Route: 048
     Dates: start: 20101014
  4. REVLIMID [Suspect]
     Indication: MULTIPLE MYELOMA
     Dosage: 25 MG, 1 IN 1 D, PO : 25 MG, QD X14 DAYS, PO
     Route: 048
     Dates: start: 20081101
  5. ASPIRIN [Concomitant]
  6. PRILOSEC [Concomitant]
  7. CYTOXAN [Concomitant]
  8. DECADRON [Concomitant]
  9. JANUMET [Concomitant]
  10. MULTI [Concomitant]
  11. HUMALOG [Concomitant]
  12. VITAMIN D [Concomitant]
  13. DIOVAN [Concomitant]
  14. VITAMIN D [Concomitant]
  15. CALCIUM [Concomitant]

REACTIONS (2)
  - FALL [None]
  - HIP FRACTURE [None]
